FAERS Safety Report 7607930-8 (Version None)
Quarter: 2011Q3

REPORT INFORMATION
  Report Type: 
  Country: None (occurrence: None)
  Receive Date: 20110714
  Receipt Date: 20110704
  Transmission Date: 20111222
  Serious: No
  Sender: FDA-Public Use
  Company Number: IT-DENTSPLY-2011-0057-EUR

PATIENT
  Sex: Female

DRUGS (1)
  1. CARBOCAINE [Suspect]

REACTIONS (2)
  - VOMITING [None]
  - ANGIOEDEMA [None]
